FAERS Safety Report 17740744 (Version 1)
Quarter: 2020Q2

REPORT INFORMATION
  Report Type: Spontaneous
  Country: US (occurrence: US)
  Receive Date: 20200504
  Receipt Date: 20200504
  Transmission Date: 20200714
  Serious: Yes (Hospitalization)
  Sender: FDA-Public Use
  Company Number: None

PATIENT
  Age: 43 Year
  Sex: Male

DRUGS (13)
  1. FUROSEMIDE. [Concomitant]
     Active Substance: FUROSEMIDE
  2. METOPROLOL TARTRATE. [Concomitant]
     Active Substance: METOPROLOL TARTRATE
  3. PREDNISONE. [Concomitant]
     Active Substance: PREDNISONE
  4. LANTUS [Concomitant]
     Active Substance: INSULIN GLARGINE
  5. LISINOPRIL. [Concomitant]
     Active Substance: LISINOPRIL
  6. EPLERENONE. [Concomitant]
     Active Substance: EPLERENONE
  7. BD PEN [Concomitant]
  8. TACROLIMUS CAP [Suspect]
     Active Substance: TACROLIMUS
     Indication: HEART TRANSPLANT
     Route: 048
     Dates: start: 20200204
  9. HUMULIN NOS [Concomitant]
     Active Substance: INSULIN HUMAN
  10. NOVOLOG [Concomitant]
     Active Substance: INSULIN ASPART
  11. AMLODIPINE [Concomitant]
     Active Substance: AMLODIPINE BESYLATE
  12. ENTRESTO [Concomitant]
     Active Substance: SACUBITRIL\VALSARTAN
  13. POT CL MICRO [Concomitant]

REACTIONS (3)
  - COVID-19 [None]
  - Pyrexia [None]
  - Dyspnoea [None]
